FAERS Safety Report 21919450 (Version 1)
Quarter: 2023Q1

REPORT INFORMATION
  Report Type: Spontaneous
  Country: GT (occurrence: GT)
  Receive Date: 20230127
  Receipt Date: 20230127
  Transmission Date: 20230418
  Serious: Yes (Death)
  Sender: FDA-Public Use
  Company Number: GT-002147023-NVSC2023GT017962

PATIENT
  Sex: Male

DRUGS (1)
  1. GLIVEC [Suspect]
     Active Substance: IMATINIB MESYLATE
     Indication: Philadelphia positive acute lymphocytic leukaemia
     Dosage: 400 MG (1 X 400 MG)
     Route: 065

REACTIONS (3)
  - Haemorrhage [Fatal]
  - Philadelphia positive acute lymphocytic leukaemia [Fatal]
  - Malignant neoplasm progression [Fatal]
